FAERS Safety Report 15305309 (Version 2)
Quarter: 2018Q4

REPORT INFORMATION
  Report Type: Spontaneous
  Country: US (occurrence: US)
  Receive Date: 20180822
  Receipt Date: 20181019
  Transmission Date: 20190204
  Serious: No
  Sender: FDA-Public Use
  Company Number: US-GLENMARK PHARMACEUTICALS-2018GMK036412

PATIENT

DRUGS (1)
  1. TELMISARTAN TABLETS [Suspect]
     Active Substance: TELMISARTAN
     Indication: PRODUCT USED FOR UNKNOWN INDICATION
     Dosage: UNK
     Route: 065

REACTIONS (4)
  - Product storage error [Unknown]
  - Product use complaint [Unknown]
  - No adverse event [Unknown]
  - Product packaging issue [Unknown]
